FAERS Safety Report 16155811 (Version 7)
Quarter: 2019Q3

REPORT INFORMATION
  Report Type: Report from Study
  Country: None (occurrence: DE)
  Receive Date: 20190404
  Receipt Date: 20190723
  Transmission Date: 20191004
  Serious: Yes (Hospitalization, Other)
  Sender: FDA-Public Use
  Company Number: DE-ABBVIE-19S-062-2730808-00

PATIENT
  Age: 69 Year
  Sex: Male
  Weight: 100 kg

DRUGS (7)
  1. MADOPAR DEPOT [Concomitant]
     Active Substance: BENSERAZIDE HYDROCHLORIDE\LEVODOPA
     Indication: PRODUCT USED FOR UNKNOWN INDICATION
  2. DUODOPA [Suspect]
     Active Substance: CARBIDOPA\LEVODOPA
     Route: 050
  3. XADAGO [Concomitant]
     Active Substance: SAFINAMIDE MESYLATE
     Indication: PRODUCT USED FOR UNKNOWN INDICATION
  4. NEUPRO [Concomitant]
     Active Substance: ROTIGOTINE
     Indication: PRODUCT USED FOR UNKNOWN INDICATION
  5. AMANTADIN [Concomitant]
     Active Substance: AMANTADINE
     Indication: PRODUCT USED FOR UNKNOWN INDICATION
  6. AZILECT [Concomitant]
     Active Substance: RASAGILINE MESYLATE
     Indication: PRODUCT USED FOR UNKNOWN INDICATION
  7. DUODOPA [Suspect]
     Active Substance: CARBIDOPA\LEVODOPA
     Indication: PARKINSON^S DISEASE
     Dosage: MD: 7.5 ML; CRD: 3.6 ML/HR; ED: 2.5 ML
     Route: 050
     Dates: start: 20180827

REACTIONS (11)
  - Rash [Unknown]
  - Pilonidal cyst [Recovered/Resolved]
  - Skin disorder [Unknown]
  - Skin cancer [Not Recovered/Not Resolved]
  - Bowen^s disease [Unknown]
  - Squamous cell carcinoma [Unknown]
  - Rash papular [Unknown]
  - Arrhythmia [Not Recovered/Not Resolved]
  - Cerebrovascular accident [Recovering/Resolving]
  - Pilonidal cyst [Unknown]
  - Pruritus [Unknown]

NARRATIVE: CASE EVENT DATE: 201809
